FAERS Safety Report 5366561-3 (Version None)
Quarter: 2007Q2

REPORT INFORMATION
  Report Type: 
  Country: None (occurrence: None)
  Receive Date: 20070622
  Receipt Date: 20070612
  Transmission Date: 20071010
  Serious: Yes (Life-Threatening, Hospitalization, Other)
  Sender: FDA-Public Use
  Company Number: JP-PFIZER INC-2006139902

PATIENT
  Sex: Male
  Weight: 110 kg

DRUGS (6)
  1. SOLU-MEDROL [Suspect]
     Indication: LEUKOENCEPHALOMYELITIS
     Dosage: DAILY DOSE:1GRAM
     Route: 042
     Dates: start: 20030227, end: 20030308
  2. HEPARIN [Concomitant]
     Route: 042
  3. ZOVIRAX [Concomitant]
     Route: 042
     Dates: start: 20030301, end: 20030311
  4. HEPARIN [Concomitant]
     Dates: start: 20030227, end: 20030409
  5. ABBOKINASE [Concomitant]
  6. WARFARIN SODIUM [Concomitant]

REACTIONS (4)
  - HAEMATURIA [None]
  - PLEURAL EFFUSION [None]
  - PNEUMOTHORAX [None]
  - PULMONARY EMBOLISM [None]
